FAERS Safety Report 20096692 (Version 2)
Quarter: 2021Q4

REPORT INFORMATION
  Report Type: Spontaneous
  Country: KR (occurrence: KR)
  Receive Date: 20211122
  Receipt Date: 20211201
  Transmission Date: 20220303
  Serious: Yes (Death)
  Sender: FDA-Public Use
  Company Number: KR-COLLEGIUM PHARMACEUTICAL, INC.-2021CGM01205

PATIENT
  Age: 71 Year
  Sex: Male

DRUGS (7)
  1. NUCYNTA [Suspect]
     Active Substance: TAPENTADOL HYDROCHLORIDE
     Indication: Pain
     Dosage: 50 MG, 2X/DAY
     Route: 048
     Dates: start: 20210812, end: 20210815
  2. LANSOPRAZOLE [Concomitant]
     Active Substance: LANSOPRAZOLE
  3. OPHERYL SR [Concomitant]
  4. LACTULOSE [Concomitant]
     Active Substance: LACTULOSE
  5. MEPERIDINE HYDROCHLORIDE [Concomitant]
     Active Substance: MEPERIDINE HYDROCHLORIDE
  6. TRAMADOL HYDROCHLORIDE [Concomitant]
     Active Substance: TRAMADOL HYDROCHLORIDE
  7. MAGNESIUM HYDROXIDE [Concomitant]
     Active Substance: MAGNESIUM HYDROXIDE

REACTIONS (2)
  - Aspiration [Fatal]
  - Vomiting [Fatal]

NARRATIVE: CASE EVENT DATE: 20210801
